FAERS Safety Report 9786824 (Version 1)
Quarter: 2013Q4

REPORT INFORMATION
  Report Type: Spontaneous
  Country: GB (occurrence: GB)
  Receive Date: 20131227
  Receipt Date: 20131227
  Transmission Date: 20140711
  Serious: Yes (Hospitalization)
  Sender: FDA-Public Use
  Company Number: GB-ACTAVIS-2013-23545

PATIENT
  Sex: 0

DRUGS (4)
  1. AMOXICILLIN (UNKNOWN) [Suspect]
     Indication: PRODUCT USED FOR UNKNOWN INDICATION
     Dosage: 500 MG, TID
     Route: 048
     Dates: start: 20110614, end: 20110621
  2. AMOXICILLIN (UNKNOWN) [Suspect]
     Dosage: 500 MG, TID
     Route: 048
     Dates: start: 20110809, end: 20110816
  3. DOXYCYCLINE HYCLATE (UNKNOWN) [Suspect]
     Indication: PRODUCT USED FOR UNKNOWN INDICATION
     Dosage: 100 MG, DAILY
     Route: 048
     Dates: start: 20110704, end: 20110711
  4. TRIMETHOPRIM (UNKNOWN) [Suspect]
     Indication: PRODUCT USED FOR UNKNOWN INDICATION
     Dosage: 200 MG, BID
     Route: 048
     Dates: start: 20110321, end: 20110328

REACTIONS (3)
  - Clostridium difficile infection [Recovering/Resolving]
  - White blood cell count increased [Recovering/Resolving]
  - Enteritis [Recovering/Resolving]
